FAERS Safety Report 23295987 (Version 1)
Quarter: 2023Q4

REPORT INFORMATION
  Report Type: Spontaneous
  Country: GB (occurrence: GB)
  Receive Date: 20231214
  Receipt Date: 20231214
  Transmission Date: 20240109
  Serious: Yes (Other)
  Sender: FDA-Public Use
  Company Number: GB-SUN PHARMACEUTICAL INDUSTRIES LTD-2023RR-423090

PATIENT
  Age: 73 Year
  Sex: Male
  Weight: 85 kg

DRUGS (9)
  1. TAMSULOSIN [Suspect]
     Active Substance: TAMSULOSIN
     Indication: Product used for unknown indication
     Dosage: 400 MICROGRAM, QD
     Route: 065
     Dates: start: 20231011
  2. AMLODIPINE [Concomitant]
     Active Substance: AMLODIPINE BESYLATE
     Indication: Product used for unknown indication
     Dosage: 1 DOSAGE FORM, QD
     Route: 065
     Dates: start: 20230717
  3. ATORVASTATIN [Concomitant]
     Active Substance: ATORVASTATIN
     Indication: Product used for unknown indication
     Dosage: 1 DOSAGE FORM, QD
     Route: 065
     Dates: start: 20230717
  4. DERMOL [Concomitant]
     Active Substance: BENZALKONIUM CHLORIDE\CHLORHEXIDINE HYDROCHLORIDE\ISOPROPYL MYRISTATE\PARAFFIN
     Indication: Product used for unknown indication
     Dosage: 1 DOSAGE FORM, APPLY AND USE AS SOAP SUBSTITUTE
     Route: 061
     Dates: start: 20231106
  5. FLUCLOXACILLIN [Concomitant]
     Active Substance: FLUCLOXACILLIN
     Indication: Product used for unknown indication
     Dosage: 1 DOSAGE FORM
     Route: 065
     Dates: start: 20231106, end: 20231113
  6. HYALURONATE SODIUM [Concomitant]
     Active Substance: HYALURONATE SODIUM
     Indication: Product used for unknown indication
     Dosage: USE WHEN REQUIRED AS DIRECTED BY EYE CLINIC
     Route: 065
     Dates: start: 20230717
  7. OCTENISAN [Concomitant]
     Indication: Product used for unknown indication
     Dosage: USE AS BODY WASH. AVOID CONTACT WITH FACE
     Route: 065
     Dates: start: 20230717
  8. OPTILAST [Concomitant]
     Indication: Product used for unknown indication
     Dosage: 1 GTT DROPS, BID
     Route: 065
     Dates: start: 20230717
  9. SILDENAFIL [Concomitant]
     Active Substance: SILDENAFIL
     Indication: Product used for unknown indication
     Dosage: USE AS DIRECTED- TAKE ONE TABLET AN HOUR BEFORE...
     Route: 065
     Dates: start: 20231124

REACTIONS (2)
  - Rash morbilliform [Recovered/Resolved]
  - Dizziness [Unknown]
